FAERS Safety Report 5034781-3 (Version None)
Quarter: 2006Q2

REPORT INFORMATION
  Report Type: 
  Country: None (occurrence: None)
  Receive Date: 20060509
  Receipt Date: 20060117
  Transmission Date: 20061013
  Serious: Yes (Other)
  Sender: FDA-Public Use
  Company Number: US200512004389

PATIENT
  Sex: Female

DRUGS (2)
  1. ZYPREXA [Suspect]
  2. PROZAC [Suspect]

REACTIONS (26)
  - ALOPECIA [None]
  - AMNESIA [None]
  - COUGH [None]
  - DEHYDRATION [None]
  - DIABETES MELLITUS [None]
  - DIZZINESS [None]
  - DYSPHONIA [None]
  - HEARING IMPAIRED [None]
  - HIATUS HERNIA [None]
  - HYPERSOMNIA [None]
  - JAUNDICE [None]
  - LETHARGY [None]
  - NASAL CONGESTION [None]
  - NEPHROLITHIASIS [None]
  - OSTEOARTHRITIS [None]
  - PYREXIA [None]
  - RENAL IMPAIRMENT [None]
  - RHEUMATOID ARTHRITIS [None]
  - RHINORRHOEA [None]
  - SEDATION [None]
  - SUICIDE ATTEMPT [None]
  - UNEVALUABLE EVENT [None]
  - VISION BLURRED [None]
  - VOMITING [None]
  - WEIGHT DECREASED [None]
  - WEIGHT INCREASED [None]
